FAERS Safety Report 4808691-8 (Version None)
Quarter: 2005Q4

REPORT INFORMATION
  Report Type: 
  Country: None (occurrence: None)
  Receive Date: 20051021
  Receipt Date: 20011112
  Transmission Date: 20060501
  Serious: No
  Sender: FDA-Public Use
  Company Number: DE_011107319

PATIENT
  Age: 52 Year
  Sex: Male

DRUGS (4)
  1. ZYPREXA [Suspect]
     Indication: SCHIZOPHRENIA, PARANOID TYPE
     Dosage: 10 MG/DAY
     Dates: start: 20010104, end: 20010831
  2. DIPIPERON (PIPAMPERONE) [Concomitant]
  3. RISPERDAL [Concomitant]
  4. TEGRETAL - SLOW RELEASE (CARBAMAZEPINE) [Concomitant]

REACTIONS (2)
  - NEUTROPENIA [None]
  - WHITE BLOOD CELL COUNT DECREASED [None]
